FAERS Safety Report 17701528 (Version 2)
Quarter: 2020Q2

REPORT INFORMATION
  Report Type: Spontaneous
  Country: US (occurrence: US)
  Receive Date: 20200424
  Receipt Date: 20200506
  Transmission Date: 20200714
  Serious: Yes (Death, Life-Threatening, Hospitalization, Other)
  Sender: FDA-Public Use
  Company Number: US-ALVOGEN-2020-ALVOGEN-108166

PATIENT
  Age: 16 Year
  Sex: Female

DRUGS (2)
  1. FENTANYL. [Suspect]
     Active Substance: FENTANYL
     Indication: EPIDURAL ANALGESIA
     Dosage: ACCIDENTAL IV ADMINISTRATION OF FENTANYL WITH BUPIVACAINE INSTEAD OF PENICILLIN G.3
     Route: 042
     Dates: start: 20060705, end: 20060705
  2. BUPIVACAINE. [Suspect]
     Active Substance: BUPIVACAINE
     Indication: EPIDURAL ANALGESIA
     Dosage: ACCIDENTAL IV ADMINISTRATION OF FENTANYL WITH BUPIVACAINE INSTEAD OF PENICILLIN G.3
     Route: 042
     Dates: start: 20060705, end: 20060705

REACTIONS (8)
  - Caesarean section [Fatal]
  - Wrong product administered [Fatal]
  - Incorrect route of product administration [Fatal]
  - Circulatory collapse [Fatal]
  - Maternal exposure during pregnancy [Unknown]
  - Seizure [Fatal]
  - Product monitoring error [Fatal]
  - Respiratory distress [Fatal]

NARRATIVE: CASE EVENT DATE: 20060705
